FAERS Safety Report 16426218 (Version 1)
Quarter: 2019Q2

REPORT INFORMATION
  Report Type: Spontaneous
  Country: US (occurrence: US)
  Receive Date: 20190613
  Receipt Date: 20190613
  Transmission Date: 20190711
  Serious: Yes (Other)
  Sender: FDA-Public Use
  Company Number: US-JNJFOC-20190615922

PATIENT
  Age: 70 Year
  Sex: Male
  Weight: 92.99 kg

DRUGS (1)
  1. XARELTO [Suspect]
     Active Substance: RIVAROXABAN
     Indication: ATRIAL FIBRILLATION
     Route: 048
     Dates: start: 201707

REACTIONS (2)
  - Interstitial lung disease [Not Recovered/Not Resolved]
  - Expired product administered [Not Recovered/Not Resolved]

NARRATIVE: CASE EVENT DATE: 201904
